FAERS Safety Report 16274347 (Version 3)
Quarter: 2020Q4

REPORT INFORMATION
  Report Type: Report from Study
  Country: None (occurrence: US)
  Receive Date: 20190504
  Receipt Date: 20201230
  Transmission Date: 20210113
  Serious: Yes (Death)
  Sender: FDA-Public Use
  Company Number: US-ABBVIE-19K-163-2769643-00

PATIENT
  Age: 82 Year
  Sex: Male
  Weight: 73.28 kg

DRUGS (11)
  1. VENETOCLAX. [Suspect]
     Active Substance: VENETOCLAX
     Indication: MONOCLONAL GAMMOPATHY
     Dosage: DAY 1
     Route: 048
     Dates: start: 20180805, end: 20180805
  2. VENETOCLAX. [Suspect]
     Active Substance: VENETOCLAX
     Indication: ACUTE MYELOID LEUKAEMIA
     Dosage: DAY 2
     Route: 048
     Dates: start: 20180806, end: 20180806
  3. TYLENOL [Concomitant]
     Active Substance: ACETAMINOPHEN
     Indication: PRODUCT USED FOR UNKNOWN INDICATION
     Dosage: PRN
     Dates: start: 20180131
  4. VITAMIN D3 [Concomitant]
     Active Substance: CHOLECALCIFEROL
     Indication: PRODUCT USED FOR UNKNOWN INDICATION
     Dosage: 5000 UNIT NOT REPORTED?1 PO Q DAY
     Route: 048
     Dates: start: 20180619
  5. PREDNISONE. [Concomitant]
     Active Substance: PREDNISONE
     Indication: PRODUCT USED FOR UNKNOWN INDICATION
     Dosage: 1MG 1 P.O Q DAY
     Route: 048
     Dates: start: 20180619
  6. RESTASIS [Concomitant]
     Active Substance: CYCLOSPORINE
     Indication: PRODUCT USED FOR UNKNOWN INDICATION
     Dosage: ONE DROP EACH EYE TWICE A DAY
     Route: 047
     Dates: start: 20180131
  7. VENETOCLAX. [Suspect]
     Active Substance: VENETOCLAX
     Dosage: Q 28 DAYS
     Route: 048
     Dates: start: 20180927, end: 20190805
  8. DACOGEN [Concomitant]
     Active Substance: DECITABINE
     Indication: ACUTE MYELOID LEUKAEMIA
     Dosage: Q28 DAYS
     Dates: start: 20180927, end: 20190805
  9. PRESERVISION [Concomitant]
     Active Substance: MINERALS\VITAMINS
     Indication: PRODUCT USED FOR UNKNOWN INDICATION
     Dosage: 1 PO TWICE A DAY
     Route: 048
     Dates: start: 20180131
  10. VENETOCLAX. [Suspect]
     Active Substance: VENETOCLAX
     Route: 048
     Dates: end: 20180927
  11. DACOGEN [Concomitant]
     Active Substance: DECITABINE
     Indication: MONOCLONAL GAMMOPATHY

REACTIONS (2)
  - Death [Fatal]
  - Intentional product use issue [Unknown]

NARRATIVE: CASE EVENT DATE: 20190425
